FAERS Safety Report 4384074-2 (Version None)
Quarter: 2004Q2

REPORT INFORMATION
  Report Type: 
  Country: None (occurrence: None)
  Receive Date: 20040622
  Receipt Date: 20040622
  Transmission Date: 20050107
  Serious: Yes (Other)
  Sender: FDA-Public Use
  Company Number: None

PATIENT
  Age: 60 Year
  Sex: Female
  Weight: 70.7611 kg

DRUGS (1)
  1. PRANDIN [Suspect]
     Indication: DIABETES MELLITUS
     Dosage: 4 MG PO
     Route: 048
     Dates: start: 20040517, end: 20040530

REACTIONS (4)
  - CONSTIPATION [None]
  - HEADACHE [None]
  - HYPOGLYCAEMIA [None]
  - WEIGHT INCREASED [None]
